FAERS Safety Report 9423787 (Version 1)
Quarter: 2013Q3

REPORT INFORMATION
  Report Type: Spontaneous
  Country: BR (occurrence: BR)
  Receive Date: 20130728
  Receipt Date: 20130728
  Transmission Date: 20140515
  Serious: Yes (Death, Other)
  Sender: FDA-Public Use
  Company Number: BR-JNJFOC-20130714332

PATIENT
  Sex: Female

DRUGS (2)
  1. TYLENOL 500 [Suspect]
     Route: 065
  2. TYLENOL 500 [Suspect]
     Indication: PRODUCT USED FOR UNKNOWN INDICATION
     Dosage: USED CONTINUOUSLY
     Route: 065

REACTIONS (1)
  - Medication error [Fatal]
